FAERS Safety Report 5574266-9 (Version None)
Quarter: 2007Q4

REPORT INFORMATION
  Report Type: 
  Country: None (occurrence: None)
  Receive Date: 20071227
  Receipt Date: 20071220
  Transmission Date: 20080405
  Serious: Yes (Other)
  Sender: FDA-Public Use
  Company Number: PHEH2007US16029

PATIENT
  Age: 45 Year
  Sex: Female

DRUGS (1)
  1. LAMISIL [Suspect]
     Indication: ONYCHOMYCOSIS
     Route: 048
     Dates: start: 20030101

REACTIONS (2)
  - ONYCHOMYCOSIS [None]
  - PITUITARY TUMOUR [None]
